FAERS Safety Report 5869116-7 (Version None)
Quarter: 2008Q3

REPORT INFORMATION
  Report Type: 
  Country: None (occurrence: None)
  Receive Date: 20080903
  Receipt Date: 20080826
  Transmission Date: 20090109
  Serious: Yes (Life-Threatening, Disabling, Other)
  Sender: FDA-Public Use
  Company Number: US-CELGENEUS-163-20785-08051781

PATIENT
  Sex: Male

DRUGS (5)
  1. THALOMID [Suspect]
     Indication: MULTIPLE MYELOMA
     Dosage: 50-100MG
     Route: 048
     Dates: start: 20071106, end: 20080101
  2. THALOMID [Suspect]
     Indication: CYTOGENETIC ABNORMALITY
     Route: 048
     Dates: start: 20080211, end: 20080218
  3. THALOMID [Suspect]
     Route: 048
     Dates: start: 20080421
  4. ERYTHROPOETIN/DARBEPOETIN [Concomitant]
     Indication: ANAEMIA
     Route: 065
     Dates: start: 20080120, end: 20080215
  5. ASPIRIN [Concomitant]
     Indication: THROMBOSIS PROPHYLAXIS
     Route: 065
     Dates: start: 20000101

REACTIONS (9)
  - HEPATIC ENZYME INCREASED [None]
  - MYALGIA [None]
  - NEUROPATHY PERIPHERAL [None]
  - OSTEOARTHRITIS [None]
  - PERICARDIAL EFFUSION [None]
  - PLEURAL EFFUSION [None]
  - PLEURISY [None]
  - PNEUMONIA [None]
  - THROMBOSIS [None]
